FAERS Safety Report 18365143 (Version 1)
Quarter: 2020Q4

REPORT INFORMATION
  Report Type: Spontaneous
  Country: DE (occurrence: DE)
  Receive Date: 20201009
  Receipt Date: 20201009
  Transmission Date: 20210114
  Serious: Yes (Other)
  Sender: FDA-Public Use
  Company Number: DE-ASTRAZENECA-2020SF30080

PATIENT
  Age: 64 Year
  Sex: Male
  Weight: 55 kg

DRUGS (1)
  1. SYMBICORT [Suspect]
     Active Substance: BUDESONIDE\FORMOTEROL FUMARATE DIHYDRATE
     Indication: ASTHMA
     Dosage: 160.0 / 4.5 UG, SIX TIMES A DAY
     Route: 055
     Dates: start: 200010

REACTIONS (1)
  - Fungal sepsis [Not Recovered/Not Resolved]

NARRATIVE: CASE EVENT DATE: 201010
